FAERS Safety Report 6551687-9 (Version None)
Quarter: 2010Q1

REPORT INFORMATION
  Report Type: 
  Country: None (occurrence: None)
  Receive Date: 20100126
  Receipt Date: 20100112
  Transmission Date: 20100710
  Serious: Yes (Other)
  Sender: FDA-Public Use
  Company Number: PHHY2010DE02260

PATIENT
  Sex: Female
  Weight: 65 kg

DRUGS (3)
  1. ACLASTA/ZOLEDRONATE T29581+A++OS [Suspect]
     Indication: OSTEOPOROSIS
     Dosage: 5 MG, ONCE YEARLY
     Route: 042
     Dates: start: 20091207, end: 20091207
  2. CALCIUM [Concomitant]
     Indication: OSTEOPOROSIS
     Dosage: 880 IE, DAILY
  3. VITAMIN D [Concomitant]
     Indication: OSTEOPOROSIS
     Dosage: 1500 MG, DAILY

REACTIONS (4)
  - MUCOSAL INFLAMMATION [None]
  - NASOPHARYNGITIS [None]
  - NAUSEA [None]
  - VOMITING [None]
